FAERS Safety Report 25371741 (Version 2)
Quarter: 2025Q4

REPORT INFORMATION
  Report Type: Spontaneous
  Country: US (occurrence: US)
  Receive Date: 20250529
  Receipt Date: 20251105
  Transmission Date: 20260118
  Serious: Yes (Other)
  Sender: MARINUS PHARMACEUTICALS
  Company Number: US-MARINUS PHARMACEUTICALS, INC.-MAR2025000092

PATIENT

DRUGS (2)
  1. ZTALMY [Suspect]
     Active Substance: GANAXOLONE
     Indication: Product used for unknown indication
     Dosage: 4.5 MILLILITER, TID
     Route: 048
  2. ZTALMY [Suspect]
     Active Substance: GANAXOLONE
     Dosage: 5.2 MILLILITER, TID
     Route: 048

REACTIONS (1)
  - Myoclonic epilepsy [Not Recovered/Not Resolved]
